FAERS Safety Report 8875997 (Version 1)
Quarter: 2012Q4

REPORT INFORMATION
  Report Type: 
  Country: PL (occurrence: PL)
  Receive Date: 20121030
  Receipt Date: 20121030
  Transmission Date: 20130627
  Serious: Yes (Other)
  Sender: FDA-Public Use
  Company Number: PHHY2012PL096258

PATIENT
  Age: 85 Year
  Sex: Female
  Weight: 83 kg

DRUGS (6)
  1. OMEPRAZOLE [Suspect]
     Indication: GASTROOESOPHAGEAL REFLUX DISEASE
     Dosage: 20 mg, Daily
     Route: 048
     Dates: start: 20120924, end: 20121009
  2. AMLOZEK [Interacting]
     Indication: HYPERTENSION
     Dosage: 2.5 mg, Daily
     Route: 048
     Dates: start: 2002
  3. TRITACE [Interacting]
     Indication: HYPERTENSION
     Dosage: 5 mg, Daily
     Route: 048
     Dates: start: 2008
  4. DOXAZOSIN MESYLATE [Interacting]
     Indication: HYPERTENSION
     Dosage: 1 mg, Daily
     Route: 048
     Dates: start: 2008
  5. CONCOR [Interacting]
     Indication: HYPERTENSION
     Dosage: 2.5 mg, Daily
     Route: 048
     Dates: start: 2004
  6. UNSPECIFIED INGREDIENT [Interacting]
     Indication: HYPERTENSION
     Dosage: 1.5 mg, Daily
     Dates: start: 2004

REACTIONS (2)
  - Blood pressure increased [Recovered/Resolved]
  - Drug interaction [Unknown]
